FAERS Safety Report 8504724 (Version 5)
Quarter: 2013Q1

REPORT INFORMATION
  Report Type: Spontaneous
  Country: US (occurrence: US)
  Receive Date: 20120411
  Receipt Date: 20130213
  Transmission Date: 20140127
  Serious: Yes (Other)
  Sender: FDA-Public Use
  Company Number: US-PFIZER INC-2012086210

PATIENT
  Age: 30 Year
  Sex: Female
  Weight: 104 kg

DRUGS (23)
  1. LYRICA [Suspect]
     Indication: PAIN
     Dosage: 75 MG, 3X/DAY
     Route: 048
     Dates: start: 2010, end: 201302
  2. LYRICA [Suspect]
     Dosage: 75 MG, 3X/DAY
     Route: 048
     Dates: start: 20130206
  3. NEURONTIN [Suspect]
     Indication: PAIN
     Dosage: 100 MG, 3X/DAY
     Route: 048
  4. PRISTIQ [Suspect]
     Dosage: 100 MG, 1X/DAY
     Route: 048
  5. REBIF [Concomitant]
     Dosage: 44 MCQ, 3X/WEEK
  6. VITAMIN C [Concomitant]
     Dosage: UNK
  7. B COMPLEX [Concomitant]
     Dosage: UNK
  8. MAGNESIUM [Concomitant]
     Dosage: UNK
  9. ZINC [Concomitant]
     Dosage: UNK
  10. VITAMIN D [Concomitant]
     Dosage: UNK
  11. FISH OIL [Concomitant]
     Dosage: UNK
  12. LAMOTRIGINE [Concomitant]
     Dosage: 200 MG, 1X/DAY
     Route: 048
  13. LISINOPRIL [Concomitant]
     Dosage: 20 MG, 1X/DAY
     Route: 048
  14. TRAZODONE [Concomitant]
     Dosage: 50 MG, QHS
     Route: 048
  15. VALIUM [Concomitant]
     Dosage: UNK
  16. OXYCODONE [Concomitant]
     Dosage: UNK
  17. AMBIEN [Concomitant]
     Indication: INSOMNIA
     Dosage: UNK
  18. RESTORIL [Concomitant]
     Indication: INSOMNIA
     Dosage: UNK
  19. TOPAMAX [Concomitant]
     Indication: PAIN
     Dosage: UNK
  20. PREDNISONE [Concomitant]
     Indication: MULTIPLE SCLEROSIS
     Dosage: UNK
  21. COMPAZINE [Concomitant]
     Dosage: UNK
  22. VICODIN [Concomitant]
     Dosage: UNK
  23. PROPANOLOL [Concomitant]
     Dosage: UNK

REACTIONS (27)
  - Demyelination [Unknown]
  - Spinal cord disorder [Unknown]
  - Multiple sclerosis [Unknown]
  - Blood pressure increased [Unknown]
  - Memory impairment [Unknown]
  - Road traffic accident [Unknown]
  - Back disorder [Unknown]
  - Fatigue [Unknown]
  - Constipation [Unknown]
  - Bladder disorder [Unknown]
  - Dyspnoea [Unknown]
  - Chest discomfort [Unknown]
  - Depression [Unknown]
  - Hyperaesthesia [Unknown]
  - Hypoaesthesia [Unknown]
  - Osteoarthritis [Unknown]
  - Bladder dilatation [Unknown]
  - Hearing impaired [Unknown]
  - Arthralgia [Unknown]
  - Balance disorder [Unknown]
  - Pain [Unknown]
  - Pain in extremity [Unknown]
  - Vitamin D decreased [Unknown]
  - Incorrect dose administered [Unknown]
  - Drug ineffective [Unknown]
  - Malaise [Unknown]
  - Pain [Recovering/Resolving]
